FAERS Safety Report 18113309 (Version 2)
Quarter: 2022Q2

REPORT INFORMATION
  Report Type: Spontaneous
  Country: US (occurrence: US)
  Receive Date: 20200805
  Receipt Date: 20220422
  Transmission Date: 20220721
  Serious: No
  Sender: FDA-Public Use
  Company Number: US-PFIZER INC-2020294873

PATIENT
  Age: 75 Year
  Sex: Female
  Weight: 77.11 kg

DRUGS (2)
  1. IBRANCE [Suspect]
     Active Substance: PALBOCICLIB
     Indication: Malignant nipple neoplasm
     Dosage: 125 MG
     Dates: start: 20190916
  2. IBRANCE [Suspect]
     Active Substance: PALBOCICLIB
     Indication: Breast cancer metastatic
     Dosage: 125 MG, CYCLIC (125MG TABLETS BY MOUTH FOR 21 DAYS THEN OFF FOR A WEEK)

REACTIONS (3)
  - Hypoglycaemia [Unknown]
  - Musculoskeletal disorder [Unknown]
  - Product packaging issue [Unknown]
